FAERS Safety Report 5648339-6 (Version None)
Quarter: 2008Q1

REPORT INFORMATION
  Report Type: 
  Country: None (occurrence: None)
  Receive Date: 20080303
  Receipt Date: 20080303
  Transmission Date: 20080703
  Serious: Yes (Other)
  Sender: FDA-Public Use
  Company Number: None

PATIENT
  Age: 53 Year
  Sex: Female
  Weight: 100.2449 kg

DRUGS (2)
  1. PROAIR HFA [Suspect]
     Indication: VIRAL UPPER RESPIRATORY TRACT INFECTION
     Dosage: 2 PUFFS Q 4 HOURS PO
     Route: 048
     Dates: start: 20080226, end: 20080302
  2. LEVOXYL [Concomitant]

REACTIONS (4)
  - CONDITION AGGRAVATED [None]
  - DEVICE FAILURE [None]
  - DRUG INEFFECTIVE [None]
  - PHARMACEUTICAL PRODUCT COMPLAINT [None]
